FAERS Safety Report 6984927-2 (Version None)
Quarter: 2010Q3

REPORT INFORMATION
  Report Type: 
  Country: None (occurrence: None)
  Receive Date: 20100915
  Receipt Date: 20100905
  Transmission Date: 20110219
  Serious: Yes (Other)
  Sender: FDA-Public Use
  Company Number: AU-BAXTER-2010BH023258

PATIENT

DRUGS (2)
  1. TISSEEL VH KIT [Suspect]
     Indication: ANAL FISTULA
     Route: 065
  2. TISSEEL VH KIT [Suspect]
     Indication: OFF LABEL USE
     Route: 065

REACTIONS (3)
  - OFF LABEL USE [None]
  - POSTOPERATIVE FEVER [None]
  - PYREXIA [None]
